FAERS Safety Report 21006787 (Version 2)
Quarter: 2022Q3

REPORT INFORMATION
  Report Type: Spontaneous
  Country: US (occurrence: US)
  Receive Date: 20220625
  Receipt Date: 20220701
  Transmission Date: 20221026
  Serious: No
  Sender: FDA-Public Use
  Company Number: US-UNITED THERAPEUTICS-UNT-2022-013874

PATIENT
  Age: 57 Year
  Sex: Female

DRUGS (3)
  1. TYVASO [Suspect]
     Active Substance: TREPROSTINIL
     Indication: Pulmonary arterial hypertension
     Dosage: UNK
     Dates: start: 20220601
  2. TYVASO [Suspect]
     Active Substance: TREPROSTINIL
     Dosage: 54 ?G, QID
     Dates: start: 202206
  3. TYVASO [Suspect]
     Active Substance: TREPROSTINIL
     Dosage: 54 ?G (3 TO 4 TIMES DAILY)
     Dates: start: 202206

REACTIONS (2)
  - Fatigue [Not Recovered/Not Resolved]
  - Inappropriate schedule of product administration [Unknown]

NARRATIVE: CASE EVENT DATE: 20220601
